FAERS Safety Report 8907936 (Version 1)
Quarter: 2012Q4

REPORT INFORMATION
  Report Type: 
  Country: US (occurrence: US)
  Receive Date: 20121113
  Receipt Date: 20121113
  Transmission Date: 20130627
  Serious: No
  Sender: FDA-Public Use
  Company Number: US-AMGEN-USASP2012010119

PATIENT
  Age: 52 Year
  Sex: Female

DRUGS (5)
  1. ENBREL [Suspect]
     Indication: PRODUCT USED FOR UNKNOWN INDICATION
     Dosage: 50 mg, qwk
     Route: 058
  2. SYNTHROID [Concomitant]
     Dosage: 25 mug, UNK
  3. VITAMIN E                          /00110501/ [Concomitant]
     Dosage: 1000 IU, UNK
  4. IBUPROFEN [Concomitant]
     Dosage: 400 mg, UNK
  5. MULTIVITAMIN                       /00097801/ [Concomitant]

REACTIONS (1)
  - Peritonsillar abscess [Unknown]
